FAERS Safety Report 20521515 (Version 3)
Quarter: 2022Q2

REPORT INFORMATION
  Report Type: Spontaneous
  Country: JP (occurrence: JP)
  Receive Date: 20220226
  Receipt Date: 20220505
  Transmission Date: 20220721
  Serious: Yes (Other)
  Sender: FDA-Public Use
  Company Number: JP-UNITED THERAPEUTICS-UNT-2022-001074

PATIENT
  Age: 7 Year
  Sex: Male

DRUGS (6)
  1. UNITUXIN [Suspect]
     Active Substance: DINUTUXIMAB
     Indication: Neuroblastoma
     Dosage: UNK, CYCLICAL (CYCLE 1)
     Route: 041
     Dates: start: 20220110
  2. UNITUXIN [Suspect]
     Active Substance: DINUTUXIMAB
     Dosage: UNK, CYCLICAL (CYCLE 2)
     Route: 041
     Dates: start: 20220214, end: 20220217
  3. UNITUXIN [Suspect]
     Active Substance: DINUTUXIMAB
     Dosage: UNK, CYCLICAL (CYCLE 3)
     Route: 041
     Dates: start: 20220314, end: 20220317
  4. UNITUXIN [Suspect]
     Active Substance: DINUTUXIMAB
     Dosage: UNK, CYCLICAL (CYCLE 4)
     Route: 041
     Dates: start: 20220419
  5. FILGRASTIM [Concomitant]
     Active Substance: FILGRASTIM
     Indication: Product used for unknown indication
     Dosage: UNK
     Route: 065
  6. FILGRASTIM [Concomitant]
     Active Substance: FILGRASTIM
     Dosage: UNK (CYCLE 3)
     Route: 065
     Dates: start: 20220311

REACTIONS (34)
  - Urinary retention [Recovered/Resolved]
  - Hypogammaglobulinaemia [Unknown]
  - Hypogammaglobulinaemia [Unknown]
  - Abdominal pain [Recovered/Resolved]
  - Pyrexia [Recovering/Resolving]
  - Hypoxia [Recovered/Resolved]
  - Blood pressure decreased [Recovered/Resolved]
  - Weight increased [Recovered/Resolved]
  - Vomiting [Recovered/Resolved]
  - Tachycardia [Recovered/Resolved]
  - Blood creatine phosphokinase increased [Recovered/Resolved]
  - Face oedema [Not Recovered/Not Resolved]
  - Urticaria [Recovered/Resolved]
  - Hypoalbuminaemia [Unknown]
  - Aspartate aminotransferase increased [Unknown]
  - Platelet count decreased [Recovering/Resolving]
  - Petechiae [Recovering/Resolving]
  - Urine output decreased [Unknown]
  - Blood immunoglobulin G decreased [Unknown]
  - Oedema [Unknown]
  - Blood albumin decreased [Unknown]
  - Face oedema [Recovering/Resolving]
  - Face oedema [Unknown]
  - Tachycardia [Not Recovered/Not Resolved]
  - Urticaria [Unknown]
  - Hypoalbuminaemia [Unknown]
  - Weight increased [Not Recovered/Not Resolved]
  - Weight increased [Recovering/Resolving]
  - Weight increased [Unknown]
  - Blood pressure decreased [Recovered/Resolved]
  - Blood pressure decreased [Recovered/Resolved]
  - Blood pressure decreased [Unknown]
  - Pyrexia [Not Recovered/Not Resolved]
  - Pyrexia [Recovering/Resolving]

NARRATIVE: CASE EVENT DATE: 20220101
